FAERS Safety Report 18973697 (Version 2)
Quarter: 2021Q3

REPORT INFORMATION
  Report Type: Other
  Country: IT (occurrence: IT)
  Receive Date: 20210305
  Receipt Date: 20210706
  Transmission Date: 20211014
  Serious: Yes (Death)
  Sender: FDA-Public Use
  Company Number: IT-ROCHE-2780306

PATIENT
  Sex: Female

DRUGS (2)
  1. RITUXIMAB. [Suspect]
     Active Substance: RITUXIMAB
     Indication: SCLERODERMA
     Dosage: CONCENTRATE FOR SOLUTION FOR INFUSION
     Route: 041
  2. ILOPROST. [Concomitant]
     Active Substance: ILOPROST
     Indication: SCLERODERMA

REACTIONS (2)
  - COVID-19 pneumonia [Fatal]
  - Off label use [Fatal]
